FAERS Safety Report 15728800 (Version 1)
Quarter: 2018Q4

REPORT INFORMATION
  Report Type: Spontaneous
  Country: US (occurrence: US)
  Receive Date: 20181214
  Receipt Date: 20181214
  Transmission Date: 20190205
  Serious: No
  Sender: FDA-Public Use
  Company Number: None

PATIENT
  Age: 66 Year
  Sex: Male
  Weight: 111.6 kg

DRUGS (14)
  1. XIIDRA [Suspect]
     Active Substance: LIFITEGRAST
     Indication: DRY EYE
     Dosage: ?          QUANTITY:1 DROP(S);?
     Route: 047
     Dates: start: 20181210, end: 20181214
  2. ZETIA [Concomitant]
     Active Substance: EZETIMIBE
  3. FISH OIL [Concomitant]
     Active Substance: FISH OIL
  4. LOTREL [Concomitant]
     Active Substance: AMLODIPINE BESYLATE\BENAZEPRIL HYDROCHLORIDE
  5. VITAMIN D [Concomitant]
     Active Substance: CHOLECALCIFEROL
  6. MULTIVITAMIN [Concomitant]
     Active Substance: VITAMINS
  7. ASPIRIN. [Concomitant]
     Active Substance: ASPIRIN
  8. COQ10 [Concomitant]
     Active Substance: UBIDECARENONE
  9. PREVACID [Concomitant]
     Active Substance: LANSOPRAZOLE
  10. SIMVASTATIN. [Concomitant]
     Active Substance: SIMVASTATIN
  11. XIIDRA [Suspect]
     Active Substance: LIFITEGRAST
     Indication: KERATOCONUS
     Dosage: ?          QUANTITY:1 DROP(S);?
     Route: 047
     Dates: start: 20181210, end: 20181214
  12. CARTIA XT [Concomitant]
     Active Substance: DILTIAZEM HYDROCHLORIDE
  13. FINASTERIDE. [Concomitant]
     Active Substance: FINASTERIDE
  14. LEVOTHYROXINE. [Concomitant]
     Active Substance: LEVOTHYROXINE

REACTIONS (8)
  - Sinus disorder [None]
  - Dysgeusia [None]
  - Headache [None]
  - Vision blurred [None]
  - Eye irritation [None]
  - Ocular hyperaemia [None]
  - Blindness unilateral [None]
  - Retching [None]

NARRATIVE: CASE EVENT DATE: 20181210
